FAERS Safety Report 5259699-2 (Version None)
Quarter: 2007Q1

REPORT INFORMATION
  Report Type: 
  Country: None (occurrence: None)
  Receive Date: 20070307
  Receipt Date: 20070307
  Transmission Date: 20070707
  Serious: No
  Sender: FDA-Public Use
  Company Number: None

PATIENT
  Age: 78 Year
  Sex: Male
  Weight: 70.3075 kg

DRUGS (2)
  1. CEPHALEXIN [Suspect]
     Indication: BLADDER NEOPLASM SURGERY
     Dosage: 1 CAPSULE  4 X PER DAY PO
     Route: 048
  2. CEPHALEXIN [Suspect]
     Indication: NEPHROLITHIASIS
     Dosage: 1 CAPSULE  4 X PER DAY PO
     Route: 048

REACTIONS (2)
  - CONFUSIONAL STATE [None]
  - SOMNOLENCE [None]
